FAERS Safety Report 16656185 (Version 1)
Quarter: 2019Q3

REPORT INFORMATION
  Report Type: Spontaneous
  Country: CL (occurrence: CL)
  Receive Date: 20190801
  Receipt Date: 20190801
  Transmission Date: 20191004
  Serious: Yes (Other)
  Sender: FDA-Public Use
  Company Number: CL-MYLANLABS-2019M1071197

PATIENT
  Age: 18 Year
  Sex: Female

DRUGS (5)
  1. LEPONEX [Suspect]
     Active Substance: CLOZAPINE
     Dosage: 75 MG, UNK
  2. LEPONEX [Suspect]
     Active Substance: CLOZAPINE
     Dosage: 50 MG, UNK
  3. LEPONEX [Suspect]
     Active Substance: CLOZAPINE
     Indication: SCHIZOPHRENIA
     Dosage: UNK
     Route: 065
  4. LEPONEX [Suspect]
     Active Substance: CLOZAPINE
     Dosage: 175 MG, UNK
  5. LEPONEX [Suspect]
     Active Substance: CLOZAPINE
     Dosage: 200 MG, QD

REACTIONS (6)
  - Maternal exposure during pregnancy [Unknown]
  - Psychotic symptom [Recovered/Resolved]
  - Paraparesis [Recovered/Resolved]
  - Drug intolerance [Recovered/Resolved]
  - Psychiatric decompensation [Recovered/Resolved]
  - Psychomotor hyperactivity [Recovered/Resolved]
